FAERS Safety Report 16336702 (Version 3)
Quarter: 2019Q2

REPORT INFORMATION
  Report Type: Spontaneous
  Country: US (occurrence: US)
  Receive Date: 20190521
  Receipt Date: 20190614
  Transmission Date: 20190711
  Serious: Yes (Death, Hospitalization, Other)
  Sender: FDA-Public Use
  Company Number: US-AKCEA THERAPEUTICS-2019IS001530

PATIENT

DRUGS (13)
  1. TEGSEDI [Suspect]
     Active Substance: INOTERSEN SODIUM
     Indication: HEREDITARY NEUROPATHIC AMYLOIDOSIS
     Dosage: 284 MG, QW
     Route: 058
     Dates: start: 20190404, end: 20190501
  2. DOCUSATE SODIUM. [Concomitant]
     Active Substance: DOCUSATE SODIUM
     Dosage: 100 MG, PRN ONCE A DAY
     Route: 048
  3. VITAMIN A                          /00056001/ [Concomitant]
     Active Substance: RETINOL
     Dosage: 2400 IU, UNK
     Route: 048
  4. GLIMEPIRIDE. [Concomitant]
     Active Substance: GLIMEPIRIDE
     Indication: PRODUCT USED FOR UNKNOWN INDICATION
     Dosage: 4 MG, UNK
     Route: 048
  5. COLCHICINE. [Concomitant]
     Active Substance: COLCHICINE
     Indication: PRODUCT USED FOR UNKNOWN INDICATION
     Dosage: 0.6 MG, QD
     Route: 048
  6. SYNTHROID [Concomitant]
     Active Substance: LEVOTHYROXINE SODIUM
     Dosage: 25 MICROGRAM, 2 TABS QD
     Route: 048
  7. FERROUS SULFATE. [Concomitant]
     Active Substance: FERROUS SULFATE
     Dosage: 142 UNK, QD
     Route: 048
  8. XARELTO [Concomitant]
     Active Substance: RIVAROXABAN
     Dosage: 20 MG, QD
     Route: 048
  9. ATORVASTATIN CALCIUM. [Concomitant]
     Active Substance: ATORVASTATIN CALCIUM
     Indication: PRODUCT USED FOR UNKNOWN INDICATION
     Dosage: 10 MG, QD
     Route: 048
  10. BUMEX [Concomitant]
     Active Substance: BUMETANIDE
     Indication: PRODUCT USED FOR UNKNOWN INDICATION
     Dosage: 1 MG, UNK
     Route: 048
  11. XARELTO [Concomitant]
     Active Substance: RIVAROXABAN
     Indication: PRODUCT USED FOR UNKNOWN INDICATION
     Dosage: 10 MG, UNK
     Route: 048
  12. TRADJENTA [Concomitant]
     Active Substance: LINAGLIPTIN
     Dosage: 5 MG, QD
     Route: 048
  13. CARVEDILOL. [Concomitant]
     Active Substance: CARVEDILOL
     Indication: PRODUCT USED FOR UNKNOWN INDICATION
     Dosage: 3.125 MG, BID
     Route: 048

REACTIONS (41)
  - Respiratory failure [Unknown]
  - Schistocytosis [Unknown]
  - Blood urea increased [Unknown]
  - Brain natriuretic peptide increased [Unknown]
  - Haemoglobin decreased [Unknown]
  - Haematocrit decreased [Unknown]
  - Protein total increased [Unknown]
  - Lymphocyte count decreased [Unknown]
  - Red blood cell target cells present [Unknown]
  - Glomerulonephritis [Unknown]
  - Oedema peripheral [Unknown]
  - Blood creatinine increased [Unknown]
  - Red blood cell count decreased [Unknown]
  - Polychromasia [Unknown]
  - Elliptocytosis [Unknown]
  - Renal disorder [Unknown]
  - Hyperlipidaemia [Unknown]
  - Cardiac failure acute [Unknown]
  - Cardiac failure congestive [Unknown]
  - Hypochromasia [Unknown]
  - Oedema [Unknown]
  - Red cell distribution width increased [Unknown]
  - Mean cell haemoglobin concentration [Unknown]
  - Platelet count decreased [Unknown]
  - Poikilocytosis [Unknown]
  - Cellulitis [Unknown]
  - Multiple organ dysfunction syndrome [Unknown]
  - Hypoxia [Unknown]
  - Blood creatinine increased [Unknown]
  - Wound [Unknown]
  - Blood albumin decreased [Unknown]
  - Mean cell haemoglobin decreased [Unknown]
  - Anisocytosis [Unknown]
  - Sepsis [Fatal]
  - Glomerular filtration rate decreased [Not Recovered/Not Resolved]
  - Leg amputation [Unknown]
  - Hypercapnia [Unknown]
  - Anaemia [Unknown]
  - Fatigue [Unknown]
  - Feeling abnormal [Unknown]
  - Macrocytosis [Unknown]

NARRATIVE: CASE EVENT DATE: 20190401
